FAERS Safety Report 17006545 (Version 2)
Quarter: 2019Q4

REPORT INFORMATION
  Report Type: Spontaneous
  Country: PL (occurrence: PL)
  Receive Date: 20191107
  Receipt Date: 20191118
  Transmission Date: 20200122
  Serious: Yes (Other)
  Sender: FDA-Public Use
  Company Number: PL-PFIZER INC-2019477358

PATIENT
  Age: 49 Year
  Sex: Male

DRUGS (15)
  1. FENTANYL. [Suspect]
     Active Substance: FENTANYL
     Indication: BREAKTHROUGH PAIN
     Dosage: 100 UG, 1 PATCH, Q72H
     Dates: start: 2018
  2. FENTANYL. [Suspect]
     Active Substance: FENTANYL
     Indication: ANALGESIC THERAPY
     Dosage: 10 PACKS OF THE DRUG BETWEEN APPOINTMENTS
     Route: 045
     Dates: start: 2015
  3. FENTANYL. [Suspect]
     Active Substance: FENTANYL
     Dosage: 400 UG, QID INTO EACH NOSTRIL
     Route: 045
     Dates: start: 2015
  4. MORPHINI SULFAS [Suspect]
     Active Substance: MORPHINE SULFATE
     Indication: ANALGESIC THERAPY
     Dosage: 20 MG, PRN
     Dates: start: 2015
  5. METHADONE [Suspect]
     Active Substance: METHADONE HYDROCHLORIDE
     Indication: ANALGESIC THERAPY
     Dosage: UNK
  6. FENTANYL. [Suspect]
     Active Substance: FENTANYL
     Dosage: TWICE THE PRESCRIBED AMOUNT
     Route: 045
     Dates: start: 2017
  7. KETOPROFEN. [Suspect]
     Active Substance: KETOPROFEN
     Indication: ANALGESIC THERAPY
     Dosage: 100 MG, PRN
     Dates: start: 2015
  8. PREGABALIN. [Suspect]
     Active Substance: PREGABALIN
     Indication: ANALGESIC THERAPY
     Dosage: 150 MG, Q12H
     Dates: start: 2018
  9. OXYCODONE [Suspect]
     Active Substance: OXYCODONE
     Indication: BREAKTHROUGH PAIN
     Dosage: 80 MG, Q8H
     Dates: start: 2015
  10. SEVREDOL [Suspect]
     Active Substance: MORPHINE
     Indication: BREAKTHROUGH PAIN
     Dosage: 20 MG, PRN
     Dates: start: 2018
  11. FENTANYL. [Suspect]
     Active Substance: FENTANYL
     Indication: BREAKTHROUGH PAIN
     Dosage: 400 UG, QID INTO EACH NOSTRIL
     Route: 045
     Dates: start: 2018
  12. FENTANYL. [Suspect]
     Active Substance: FENTANYL
     Dosage: 100 UG, Q8H
     Route: 045
     Dates: start: 2015
  13. FENTANYL. [Suspect]
     Active Substance: FENTANYL
     Indication: ANALGESIC THERAPY
     Dosage: PHARMACEUTICAL DOSE FORM: SUBLINGUAL TABLET
     Route: 060
  14. OXYCODONE [Suspect]
     Active Substance: OXYCODONE
     Indication: ANALGESIC THERAPY
     Dosage: 80 MG, Q8H
     Dates: start: 2018
  15. PREGABALIN. [Suspect]
     Active Substance: PREGABALIN
     Indication: BREAKTHROUGH PAIN
     Dosage: 120 MG, Q12H
     Dates: start: 2015

REACTIONS (2)
  - Drug dependence [Not Recovered/Not Resolved]
  - Prescription form tampering [Unknown]

NARRATIVE: CASE EVENT DATE: 2015
